FAERS Safety Report 5716325-3 (Version None)
Quarter: 2008Q2

REPORT INFORMATION
  Report Type: 
  Country: None (occurrence: None)
  Receive Date: 20080424
  Receipt Date: 20080411
  Transmission Date: 20081010
  Serious: Yes (Hospitalization)
  Sender: FDA-Public Use
  Company Number: US-MERCK-98020604

PATIENT
  Age: 34 Year
  Sex: Female

DRUGS (1)
  1. DECADRON [Suspect]
     Indication: MIGRAINE
     Route: 065

REACTIONS (4)
  - CARDIAC FAILURE CONGESTIVE [None]
  - CARDIOMYOPATHY [None]
  - PHAEOCHROMOCYTOMA [None]
  - VIRAL INFECTION [None]
